FAERS Safety Report 6125485-4 (Version None)
Quarter: 2009Q1

REPORT INFORMATION
  Report Type: 
  Country: None (occurrence: None)
  Receive Date: 20090319
  Receipt Date: 20090319
  Transmission Date: 20090719
  Serious: Yes (Other)
  Sender: FDA-Public Use
  Company Number: None

PATIENT
  Sex: Female
  Weight: 54.4316 kg

DRUGS (1)
  1. ZOCOR [Suspect]
     Dosage: 1 TABLET DAILY

REACTIONS (2)
  - ARTHRALGIA [None]
  - GAIT DISTURBANCE [None]
